FAERS Safety Report 7921344-2 (Version None)
Quarter: 2011Q4

REPORT INFORMATION
  Report Type: 
  Country: None (occurrence: None)
  Receive Date: 20111117
  Receipt Date: 20111108
  Transmission Date: 20120403
  Serious: Yes (Disabling, Congenital Anomaly)
  Sender: FDA-Public Use
  Company Number: JP-ASTRAZENECA-2010SE18462

PATIENT
  Age: 0 Day
  Sex: Male
  Weight: 2 kg

DRUGS (8)
  1. CANDESARTAN CILEXETIL [Suspect]
     Route: 064
     Dates: start: 20051028, end: 20060101
  2. BISOPROLOL FUMARATE [Suspect]
     Indication: HYPERTENSION
     Route: 064
     Dates: start: 20041230, end: 20060101
  3. TRICHLORMETHIAZIDE [Suspect]
     Indication: HYPERTENSION
     Route: 064
     Dates: start: 20040616, end: 20080120
  4. HYDRALAZINE HYDROCHLORIDE [Suspect]
     Indication: HYPERTENSION
     Route: 064
     Dates: start: 20060101
  5. ALDOMET [Suspect]
     Indication: HYPERTENSION
     Route: 064
     Dates: start: 20040319, end: 20040615
  6. ALDOMET [Suspect]
     Route: 064
     Dates: start: 20040616, end: 20080120
  7. CANDESARTAN CILEXETIL [Suspect]
     Indication: HYPERTENSION
     Route: 064
     Dates: start: 20041125, end: 20051027
  8. PERINDOPRIL ERBUMINE [Suspect]
     Indication: HYPERTENSION
     Route: 064
     Dates: start: 20050209, end: 20060101

REACTIONS (1)
  - RENAL APLASIA [None]
